FAERS Safety Report 16788880 (Version 3)
Quarter: 2020Q3

REPORT INFORMATION
  Report Type: Spontaneous
  Country: CH (occurrence: CH)
  Receive Date: 20190910
  Receipt Date: 20200902
  Transmission Date: 20201102
  Serious: Yes (Hospitalization, Other)
  Sender: FDA-Public Use
  Company Number: CH-SUN PHARMACEUTICAL INDUSTRIES LTD-2019R1-219036

PATIENT
  Age: 6 Week
  Sex: Male
  Weight: 4.8 kg

DRUGS (1)
  1. MORPHINE [Suspect]
     Active Substance: MORPHINE
     Indication: PAIN
     Dosage: 5 MILLIGRAM/KILOGRAM

REACTIONS (10)
  - Bradypnoea [Recovering/Resolving]
  - Meningitis [Recovering/Resolving]
  - Product prescribing error [Unknown]
  - Agitation [Unknown]
  - Myoclonus [Recovering/Resolving]
  - Tachypnoea [Recovering/Resolving]
  - Somnolence [Recovering/Resolving]
  - Respiratory syncytial virus infection [Recovered/Resolved]
  - Overdose [Unknown]
  - Opisthotonus [Recovering/Resolving]
